FAERS Safety Report 9815064 (Version 3)
Quarter: 2014Q1

REPORT INFORMATION
  Report Type: Report from Study
  Country: US (occurrence: US)
  Receive Date: 20140114
  Receipt Date: 20140321
  Transmission Date: 20141002
  Serious: Yes (Other)
  Sender: FDA-Public Use
  Company Number: US-ROCHE-GNE255870

PATIENT
  Age: 35 Year
  Sex: Male
  Weight: 98.71 kg

DRUGS (8)
  1. OMALIZUMAB [Suspect]
     Indication: ASTHMA
     Dosage: 300 MG, Q2W
     Route: 058
     Dates: start: 20070720, end: 20071108
  2. ADVAIR [Concomitant]
     Route: 065
     Dates: start: 20070313
  3. ACIPHEX [Concomitant]
     Route: 065
     Dates: start: 20070313
  4. NEXIUM [Concomitant]
     Route: 065
     Dates: start: 20070313
  5. ALBUTEROL [Concomitant]
  6. RHINOCORT [Concomitant]
  7. SINGULAIR [Concomitant]
  8. ZYRTEC [Concomitant]

REACTIONS (4)
  - Anaemia [Recovering/Resolving]
  - White blood cell count decreased [Recovering/Resolving]
  - Splenomegaly [Unknown]
  - Reticulocyte count increased [Unknown]
